FAERS Safety Report 17928323 (Version 1)
Quarter: 2020Q2

REPORT INFORMATION
  Report Type: Spontaneous
  Country: CN (occurrence: CN)
  Receive Date: 20200622
  Receipt Date: 20200622
  Transmission Date: 20200714
  Serious: Yes (Other)
  Sender: FDA-Public Use
  Company Number: CN-BAXTER-2020BAX012630

PATIENT
  Age: 74 Year
  Sex: Female

DRUGS (1)
  1. 20% MANNITOL INJECTION [Suspect]
     Active Substance: MANNITOL
     Indication: CEREBRAL INFARCTION
     Route: 041
     Dates: start: 20200604, end: 20200607

REACTIONS (1)
  - Renal failure [Recovering/Resolving]

NARRATIVE: CASE EVENT DATE: 20200607
